FAERS Safety Report 7906166 (Version 3)
Quarter: 2012Q4

REPORT INFORMATION
  Report Type: 
  Country: US (occurrence: US)
  Receive Date: 20110420
  Receipt Date: 20121109
  Transmission Date: 20130627
  Serious: Yes (Hospitalization, Other)
  Sender: FDA-Public Use
  Company Number: US-ELI_LILLY_AND_COMPANY-US201102003032

PATIENT
  Sex: Female

DRUGS (13)
  1. FORTEO [Suspect]
     Indication: OSTEOPOROSIS
     Dosage: 20 ug, daily (1/D)
     Dates: start: 20110105
  2. FORTEO [Suspect]
     Dosage: 20 ug, qd
  3. FORTEO [Suspect]
     Dosage: 20 ug, qd
  4. FORTEO [Suspect]
     Dosage: 20 ug, qd
  5. FORTEO [Suspect]
     Dosage: 20 ug, qd
  6. ACTONEL [Concomitant]
  7. FISH OIL [Concomitant]
     Dosage: 1400 mg, qd
  8. METOPROLOL [Concomitant]
     Dosage: 25 mg, bid
  9. CALTRATE [Concomitant]
     Dosage: 600 mg, qd
  10. ICAPS [Concomitant]
  11. MULTIVITAMINS W/FLUORIDE [Concomitant]
     Dosage: UNK, qd
  12. XALATAN [Concomitant]
     Dosage: 1 drop OU Qd
  13. BABY ASPIRIN [Concomitant]
     Dosage: 81 mg, qd

REACTIONS (7)
  - Pelvic fracture [Recovering/Resolving]
  - Pulmonary embolism [Unknown]
  - Loss of consciousness [Unknown]
  - Fall [Recovering/Resolving]
  - Injection site pruritus [Recovered/Resolved]
  - Fall [Unknown]
  - Mobility decreased [Unknown]
